FAERS Safety Report 17030383 (Version 1)
Quarter: 2019Q4

REPORT INFORMATION
  Report Type: Spontaneous
  Country: US (occurrence: US)
  Receive Date: 20191114
  Receipt Date: 20191114
  Transmission Date: 20200122
  Serious: No
  Sender: FDA-Public Use
  Company Number: US-ALLERGAN-1905067US

PATIENT
  Sex: Male

DRUGS (5)
  1. TRAVATAN Z [Concomitant]
     Active Substance: TRAVOPROST
  2. LOPRESSOR [Concomitant]
     Active Substance: METOPROLOL TARTRATE
  3. COMBIGAN [Suspect]
     Active Substance: BRIMONIDINE TARTRATE\TIMOLOL MALEATE
     Indication: GLAUCOMA
     Dosage: UNK
     Route: 047
  4. AZOPT [Concomitant]
     Active Substance: BRINZOLAMIDE
  5. SYSTANE (HYPROMELLOSE 2910 (4000 MPA.S)) [Concomitant]
     Active Substance: HYPROMELLOSE 2910 (4000 MPA.S)
     Indication: DRY EYE

REACTIONS (2)
  - Lacrimation increased [Unknown]
  - Dry eye [Unknown]
